FAERS Safety Report 9897983 (Version 2)
Quarter: 2014Q2

REPORT INFORMATION
  Report Type: Spontaneous
  Country: GB (occurrence: GB)
  Receive Date: 20140214
  Receipt Date: 20140404
  Transmission Date: 20141212
  Serious: Yes (Life-Threatening, Hospitalization, Disabling, Other)
  Sender: FDA-Public Use
  Company Number: GB-009507513-1402GBR006945

PATIENT
  Age: 69 Year
  Sex: Male
  Weight: 74 kg

DRUGS (12)
  1. MIRTAZAPINE [Suspect]
     Indication: DEMENTIA
     Dosage: 45 MG
     Route: 048
     Dates: start: 2012
  2. EPILIM [Suspect]
     Indication: MOOD ALTERED
     Dosage: 400 MG, BID
     Route: 048
     Dates: start: 2012
  3. CLONAZEPAM [Suspect]
     Indication: AGGRESSION
     Dosage: AT NIGHT
     Route: 048
     Dates: start: 2012
  4. OLANZAPINE [Suspect]
     Dosage: 10 MG, QD
     Route: 048
     Dates: start: 2012
  5. ALFUZOSIN HYDROCHLORIDE [Concomitant]
     Dosage: 10 MG, QD
  6. ASPIRIN [Concomitant]
     Dosage: 75 MG, QD
  7. ATORVASTATIN [Concomitant]
     Dosage: 40 MG, QD
  8. CLOPIDOGREL [Concomitant]
     Dosage: 75 MG, QD
  9. FYBOGEL [Concomitant]
     Dosage: 1 DF, QD
  10. ISOSORBIDE MONONITRATE [Concomitant]
     Dosage: 60 MG, QD
  11. IVABRADINE [Concomitant]
     Dosage: 5 MG, BID
  12. OMEPRAZOLE [Concomitant]
     Dosage: 40 MG, QD

REACTIONS (3)
  - Convulsion [Recovered/Resolved]
  - Hyponatraemia [Recovered/Resolved]
  - Dehydration [Recovered/Resolved]
